FAERS Safety Report 8618151 (Version 3)
Quarter: 2012Q4

REPORT INFORMATION
  Report Type: 
  Country: DE (occurrence: DE)
  Receive Date: 20120615
  Receipt Date: 20121023
  Transmission Date: 20130627
  Serious: Yes (Other)
  Sender: FDA-Public Use
  Company Number: DE-TEVA-342171GER

PATIENT
  Age: 62 Year
  Sex: Female

DRUGS (9)
  1. PACLITAXEL [Suspect]
     Indication: METASTASES TO LUNG
     Route: 042
     Dates: start: 2008
  2. PACLITAXEL [Suspect]
     Indication: METASTASES TO SKIN
  3. PACLITAXEL [Suspect]
     Indication: METASTASES TO CENTRAL NERVOUS SYSTEM
  4. PACLITAXEL [Suspect]
     Indication: METASTASES TO LYMPH NODES
  5. CISPLATIN [Suspect]
     Indication: METASTASES TO LUNG
     Route: 042
     Dates: start: 2008
  6. CISPLATIN [Suspect]
     Indication: METASTASES TO SKIN
  7. CISPLATIN [Suspect]
     Indication: METASTASES TO CENTRAL NERVOUS SYSTEM
  8. CISPLATIN [Suspect]
     Indication: METASTASES TO LYMPH NODES
  9. SORAFENIB [Suspect]
     Dosage: 800 Milligram Daily;
     Route: 048
     Dates: start: 2008

REACTIONS (1)
  - Cystoid macular oedema [Recovered/Resolved]
